FAERS Safety Report 5676385-5 (Version None)
Quarter: 2008Q1

REPORT INFORMATION
  Report Type: 
  Country: None (occurrence: None)
  Receive Date: 20080321
  Receipt Date: 20080312
  Transmission Date: 20080703
  Serious: Yes (Other)
  Sender: FDA-Public Use
  Company Number: DE-PFIZER INC-2008023451

PATIENT
  Age: 75 Year
  Sex: Male

DRUGS (4)
  1. TOLTERODINE TARTRATE [Suspect]
     Indication: URGE INCONTINENCE
     Route: 048
  2. ALL OTHER THERAPEUTIC PRODUCTS [Concomitant]
     Route: 048
  3. TORSEMIDE [Concomitant]
     Route: 048
  4. BRONCHORETARD [Concomitant]
     Route: 048

REACTIONS (1)
  - BLOOD PRESSURE DECREASED [None]
